FAERS Safety Report 6913071-5 (Version None)
Quarter: 2010Q3

REPORT INFORMATION
  Report Type: 
  Country: None (occurrence: None)
  Receive Date: 20100806
  Receipt Date: 20090630
  Transmission Date: 20110219
  Serious: No
  Sender: FDA-Public Use
  Company Number: US-PFIZER INC-2009204420

PATIENT
  Sex: Female
  Weight: 71.6 kg

DRUGS (1)
  1. DETROL [Suspect]
     Indication: POLLAKIURIA
     Dosage: 4 MG, UNK
     Dates: end: 20090301

REACTIONS (2)
  - DRUG INEFFECTIVE [None]
  - HEADACHE [None]
